FAERS Safety Report 6243273-5 (Version None)
Quarter: 2009Q2

REPORT INFORMATION
  Report Type: 
  Country: None (occurrence: None)
  Receive Date: 20090624
  Receipt Date: 20090612
  Transmission Date: 20091009
  Serious: Yes (Other)
  Sender: FDA-Public Use
  Company Number: PHHY2009JP21977

PATIENT
  Age: 69 Year
  Sex: Male

DRUGS (5)
  1. CYCLOSPORINE [Suspect]
     Indication: RHEUMATOID ARTHRITIS
     Route: 048
  2. CYCLOSPORINE [Interacting]
     Route: 048
  3. RIFAMPICIN [Interacting]
     Dosage: 450 MG
  4. PREDNISOLONE [Concomitant]
     Indication: RHEUMATOID ARTHRITIS
     Route: 048
  5. PREDNISOLONE [Concomitant]
     Indication: INTERSTITIAL LUNG DISEASE

REACTIONS (11)
  - ABDOMINAL PAIN [None]
  - ADRENAL INSUFFICIENCY [None]
  - ARTHRALGIA [None]
  - DRUG INTERACTION [None]
  - HYPERKALAEMIA [None]
  - HYPONATRAEMIA [None]
  - IMMUNOSUPPRESSANT DRUG LEVEL DECREASED [None]
  - PULMONARY TUBERCULOSIS [None]
  - PYREXIA [None]
  - RENAL IMPAIRMENT [None]
  - SHOCK [None]
